FAERS Safety Report 5822858-1 (Version None)
Quarter: 2008Q3

REPORT INFORMATION
  Report Type: 
  Country: None (occurrence: None)
  Receive Date: 20080724
  Receipt Date: 20080724
  Transmission Date: 20090109
  Serious: Yes (Other)
  Sender: FDA-Public Use
  Company Number: None

PATIENT
  Sex: Male
  Weight: 14.9687 kg

DRUGS (1)
  1. SINGULAIR [Suspect]
     Indication: SEASONAL ALLERGY
     Dosage: 4 MG DAILY PO
     Route: 048
     Dates: start: 20080722, end: 20080722

REACTIONS (11)
  - ABNORMAL BEHAVIOUR [None]
  - AGITATION [None]
  - ANXIETY [None]
  - CRYING [None]
  - DISCOMFORT [None]
  - FEAR [None]
  - MOVEMENT DISORDER [None]
  - RESTLESSNESS [None]
  - SLEEP DISORDER [None]
  - SOMNAMBULISM [None]
  - SPEECH DISORDER [None]
